FAERS Safety Report 11273460 (Version 1)
Quarter: 2015Q3

REPORT INFORMATION
  Report Type: Spontaneous
  Country: SE (occurrence: SE)
  Receive Date: 20150715
  Receipt Date: 20150715
  Transmission Date: 20151125
  Serious: Yes (Hospitalization)
  Sender: FDA-Public Use
  Company Number: SE-TEVA-578168ISR

PATIENT
  Age: 67 Year
  Sex: Female

DRUGS (3)
  1. IFOSFAMIDE. [Suspect]
     Active Substance: IFOSFAMIDE
  2. CARBOPLATIN. [Suspect]
     Active Substance: CARBOPLATIN
     Route: 065
  3. ETOPOSIDE. [Suspect]
     Active Substance: ETOPOSIDE
     Route: 065

REACTIONS (2)
  - Large intestine perforation [Unknown]
  - Neutropenic sepsis [Unknown]
